FAERS Safety Report 12783458 (Version 1)
Quarter: 2016Q3

REPORT INFORMATION
  Report Type: Spontaneous
  Country: US (occurrence: US)
  Receive Date: 20160927
  Receipt Date: 20160927
  Transmission Date: 20161109
  Serious: No
  Sender: FDA-Public Use
  Company Number: None

PATIENT
  Sex: Female
  Weight: 80 kg

DRUGS (1)
  1. PRAVASTATINA LABORATORIOS BEST. S,A.0 [Suspect]
     Active Substance: PRAVASTATIN SODIUM
     Route: 062
     Dates: start: 20160920, end: 20160927

REACTIONS (1)
  - Peripheral swelling [None]
